FAERS Safety Report 6653855-4 (Version None)
Quarter: 2010Q1

REPORT INFORMATION
  Report Type: 
  Country: None (occurrence: None)
  Receive Date: 20100326
  Receipt Date: 20090127
  Transmission Date: 20100710
  Serious: Yes (Other)
  Sender: FDA-Public Use
  Company Number: B0643068A

PATIENT
  Sex: Female
  Weight: 65 kg

DRUGS (4)
  1. AMOXICILLIN AND CLAVULANATE POTASSIUM [Suspect]
     Indication: LARYNGITIS
     Route: 048
     Dates: start: 20090111, end: 20090112
  2. GESTODENE [Concomitant]
     Indication: CONTRACEPTION
     Dosage: .095MG PER DAY
     Route: 048
  3. ETHINYL ESTRADIOL [Concomitant]
     Indication: CONTRACEPTION
     Dosage: .095MG PER DAY
     Route: 048
  4. PARACETAMOL [Concomitant]
     Indication: MIGRAINE
     Route: 065

REACTIONS (4)
  - ABDOMINAL DISCOMFORT [None]
  - DIZZINESS [None]
  - NAUSEA [None]
  - PRESYNCOPE [None]
